FAERS Safety Report 11044901 (Version 1)
Quarter: 2015Q2

REPORT INFORMATION
  Report Type: Spontaneous
  Country: IT (occurrence: IT)
  Receive Date: 20150417
  Receipt Date: 20150417
  Transmission Date: 20150821
  Serious: Yes (Other)
  Sender: FDA-Public Use
  Company Number: IT-GLAXOSMITHKLINE-IT2015GSK051682

PATIENT
  Age: 60 Year
  Sex: Male

DRUGS (9)
  1. TICAGRELOR [Suspect]
     Active Substance: TICAGRELOR
     Indication: ANTIPLATELET THERAPY
     Dosage: 90 MG, BID
  2. ACETYLSALICYLATE LYSINE [Concomitant]
     Active Substance: ASPIRIN DL-LYSINE
     Dosage: 250 MG, UNK
     Route: 042
  3. BIVALIRUDIN [Concomitant]
     Active Substance: BIVALIRUDIN
     Dosage: 0.1 MG/KG, UNK
     Route: 042
  4. ELTROMBOPAG [Suspect]
     Active Substance: ELTROMBOPAG
     Indication: THROMBOSIS PROPHYLAXIS
  5. ASPIRIN. [Concomitant]
     Active Substance: ASPIRIN
     Dosage: 100 MG, QD
     Route: 048
  6. CLOPIDOGREL [Suspect]
     Active Substance: CLOPIDOGREL BISULFATE
     Indication: ANTIPLATELET THERAPY
     Dosage: 300 MG, UNK
  7. TICAGRELOR [Suspect]
     Active Substance: TICAGRELOR
     Dosage: 45 MG, BID
  8. BIVALIRUDIN [Concomitant]
     Active Substance: BIVALIRUDIN
     Dosage: 0.25 MG/KG/ HOUR
     Route: 042
  9. CLOPIDOGREL [Suspect]
     Active Substance: CLOPIDOGREL BISULFATE
     Dosage: 75 MG, QD
     Route: 048

REACTIONS (5)
  - Pneumonia [Unknown]
  - Epistaxis [Unknown]
  - Acute myocardial infarction [Unknown]
  - Platelet disorder [Unknown]
  - Drug resistance [Unknown]
